FAERS Safety Report 7059812-0 (Version None)
Quarter: 2010Q4

REPORT INFORMATION
  Report Type: 
  Country: None (occurrence: None)
  Receive Date: 20101025
  Receipt Date: 20101019
  Transmission Date: 20110411
  Serious: Yes (Hospitalization)
  Sender: FDA-Public Use
  Company Number: ES-PFIZER INC-2010132218

PATIENT
  Age: 82 Year
  Sex: Male

DRUGS (10)
  1. ALDACTONE [Suspect]
     Dosage: 25 MG, 1X/DAY
     Route: 048
     Dates: start: 20100219, end: 20100223
  2. APROVEL [Interacting]
     Dosage: 300 MG, 1X/DAY
     Route: 048
     Dates: start: 20090122, end: 20100223
  3. LORMETAZEPAM [Concomitant]
     Dosage: 1 MG, 1X/DAY
     Route: 048
  4. DILTIAZEM [Concomitant]
     Dosage: 60 MG, 2X/DAY
     Route: 048
     Dates: start: 20100219
  5. PANTOPRAZOLE SODIUM [Concomitant]
     Dosage: 40 MG, 1X/DAY
     Route: 048
     Dates: start: 20100219
  6. AREMIS [Concomitant]
     Dosage: 50 MG, 1X/DAY
     Route: 048
     Dates: start: 20100219
  7. CARDYL [Concomitant]
     Dosage: 20 MG, 1X/DAY
     Route: 048
     Dates: start: 20100122
  8. CYANOCOBALAMIN/FOLIC ACID [Concomitant]
     Dosage: UNK
     Route: 048
     Dates: start: 20090122
  9. SEGURIL [Concomitant]
     Dosage: 20 MG, 3X/DAY
     Route: 048
     Dates: start: 20100219
  10. SINTROM [Concomitant]
     Dosage: UNK
     Route: 048

REACTIONS (3)
  - DRUG INTERACTION [None]
  - HYPOTENSION [None]
  - RENAL FAILURE CHRONIC [None]
